FAERS Safety Report 8472757-4 (Version None)
Quarter: 2012Q2

REPORT INFORMATION
  Report Type: 
  Country: None (occurrence: None)
  Receive Date: 20120627
  Receipt Date: 20120627
  Transmission Date: 20120825
  Serious: Yes (Death, Hospitalization, Other)
  Sender: FDA-Public Use
  Company Number: PHHY2011NL72017

PATIENT
  Age: 65 Year
  Sex: Female

DRUGS (6)
  1. CLOZAPINE [Interacting]
     Dosage: 300 MG, QD
  2. AMITRIPTYLINE HCL [Interacting]
     Dosage: 250 MG, DAILY
  3. AMITRIPTYLINE HCL [Interacting]
     Dosage: 50 MG,
  4. ACETAMINOPHEN [Concomitant]
     Dosage: 500 MG,
  5. CLOZAPINE [Suspect]
     Indication: SCHIZOPHRENIA
     Dosage: 300 MG, DAILY
  6. PROMETHAZINE [Concomitant]
     Dosage: 25 MG,

REACTIONS (9)
  - DRUG INTERACTION [None]
  - INTERSTITIAL LUNG DISEASE [None]
  - PULMONARY TOXICITY [None]
  - HUMERUS FRACTURE [None]
  - INFLAMMATION [None]
  - BRONCHOALVEOLAR LAVAGE ABNORMAL [None]
  - RESPIRATORY FAILURE [None]
  - TOXICITY TO VARIOUS AGENTS [None]
  - ANTIPSYCHOTIC DRUG LEVEL ABOVE THERAPEUTIC [None]
